FAERS Safety Report 6579715-5 (Version None)
Quarter: 2010Q1

REPORT INFORMATION
  Report Type: 
  Country: None (occurrence: None)
  Receive Date: 20100212
  Receipt Date: 20100202
  Transmission Date: 20100710
  Serious: Yes (Hospitalization)
  Sender: FDA-Public Use
  Company Number: A0795303B

PATIENT
  Sex: Male

DRUGS (4)
  1. ACYCLOVIR [Suspect]
  2. ZYRTEC [Concomitant]
     Dates: start: 20090625
  3. PREVACID [Concomitant]
     Dates: start: 20090625
  4. SYNTHROID [Concomitant]
     Dosage: 25MG PER DAY

REACTIONS (2)
  - DRUG EXPOSURE DURING PREGNANCY [None]
  - PREMATURE BABY [None]
